FAERS Safety Report 9299465 (Version 2)
Quarter: 2013Q4

REPORT INFORMATION
  Report Type: Report from Study
  Country: DE (occurrence: DE)
  Receive Date: 20130521
  Receipt Date: 20131205
  Transmission Date: 20140711
  Serious: Yes (Death, Other)
  Sender: FDA-Public Use
  Company Number: DE-ROCHE-1225975

PATIENT
  Age: 69 Year
  Sex: Female
  Weight: 67 kg

DRUGS (1)
  1. BEVACIZUMAB [Suspect]
     Indication: OVARIAN CANCER METASTATIC
     Dosage: LAST DOSE PRIOR TO SAE: 15/APR/2013
     Route: 042
     Dates: start: 20130304

REACTIONS (3)
  - Intestinal perforation [Fatal]
  - Leukopenia [Fatal]
  - Thrombocytopenia [Unknown]
